FAERS Safety Report 18570088 (Version 1)
Quarter: 2020Q4

REPORT INFORMATION
  Report Type: Other
  Country: DE (occurrence: DE)
  Receive Date: 20201202
  Receipt Date: 20201202
  Transmission Date: 20210114
  Serious: Yes (Other)
  Sender: FDA-Public Use
  Company Number: DE-NAVINTA LLC-000109

PATIENT

DRUGS (3)
  1. RIBAVIRIN. [Suspect]
     Active Substance: RIBAVIRIN
     Indication: CHRONIC HEPATITIS C
     Dates: start: 201903
  2. VELPATASVIR [Suspect]
     Active Substance: VELPATASVIR
     Indication: CHRONIC HEPATITIS C
     Dates: start: 201903
  3. SOFOSBUVIR [Suspect]
     Active Substance: SOFOSBUVIR
     Indication: CHRONIC HEPATITIS C
     Dates: start: 201903

REACTIONS (3)
  - Hepatitis C [Recovered/Resolved]
  - Treatment failure [Unknown]
  - Off label use [Unknown]
